FAERS Safety Report 7559506-9 (Version None)
Quarter: 2011Q2

REPORT INFORMATION
  Report Type: 
  Country: None (occurrence: None)
  Receive Date: 20110613
  Receipt Date: 20110531
  Transmission Date: 20111010
  Serious: Yes (Hospitalization, Other)
  Sender: FDA-Public Use
  Company Number: 117843

PATIENT
  Age: 50 Year
  Sex: Female

DRUGS (2)
  1. LORAZEPAM [Suspect]
  2. LABETALOL HCL [Suspect]

REACTIONS (10)
  - BLOOD LACTIC ACID INCREASED [None]
  - MULTIPLE DRUG OVERDOSE INTENTIONAL [None]
  - HYPOTHERMIA [None]
  - UNRESPONSIVE TO STIMULI [None]
  - HYPOTENSION [None]
  - BLOOD POTASSIUM DECREASED [None]
  - ELECTROCARDIOGRAM QRS COMPLEX PROLONGED [None]
  - BRADYCARDIA [None]
  - BLOOD GLUCOSE INCREASED [None]
  - BLOOD CREATINE PHOSPHOKINASE INCREASED [None]
